FAERS Safety Report 8003611-X (Version None)
Quarter: 2011Q4

REPORT INFORMATION
  Report Type: 
  Country: None (occurrence: None)
  Receive Date: 20111222
  Receipt Date: 20111213
  Transmission Date: 20120403
  Serious: Yes (Death, Hospitalization)
  Sender: FDA-Public Use
  Company Number: US-ACTELION-A-NJ2011-58398

PATIENT

DRUGS (4)
  1. COUMADIN [Concomitant]
  2. VENTAVIS [Suspect]
     Indication: PULMONARY ARTERIAL HYPERTENSION
     Dosage: UNK
     Route: 055
     Dates: start: 20100121
  3. EPOPROSTENOL SODIUM [Suspect]
     Indication: PULMONARY ARTERIAL HYPERTENSION
     Dosage: UNK
     Route: 041
     Dates: start: 20110101
  4. REVATIO [Concomitant]

REACTIONS (4)
  - ATRIAL SEPTAL DEFECT [None]
  - ATRIAL SEPTAL DEFECT REPAIR [None]
  - PULMONARY HYPERTENSION [None]
  - HYPOXIA [None]
